FAERS Safety Report 5331096-0 (Version None)
Quarter: 2007Q2

REPORT INFORMATION
  Report Type: 
  Country: None (occurrence: None)
  Receive Date: 20070522
  Receipt Date: 20070517
  Transmission Date: 20071010
  Serious: Yes (Disabling)
  Sender: FDA-Public Use
  Company Number: JP-BRISTOL-MYERS SQUIBB COMPANY-13681267

PATIENT
  Age: 74 Year
  Sex: Male

DRUGS (7)
  1. REYATAZ [Suspect]
     Indication: HIV INFECTION
     Route: 048
     Dates: start: 20051129
  2. EPIVIR [Suspect]
     Indication: HIV INFECTION
     Dosage: 05-MAY-05 TO 25-JUL-05, RESTARTED ON 29-NOV-05 TO UNKNOWN
     Route: 048
     Dates: start: 20050523
  3. KALETRA [Suspect]
     Indication: HIV INFECTION
     Route: 048
     Dates: start: 20050523, end: 20050725
  4. VIREAD [Suspect]
     Indication: HIV INFECTION
     Route: 048
     Dates: start: 20050523, end: 20050725
  5. BAKTAR [Concomitant]
     Route: 048
     Dates: start: 20050523, end: 20060331
  6. ZIAGEN [Concomitant]
     Route: 048
     Dates: start: 20051129
  7. NORVIR [Concomitant]
     Route: 048
     Dates: start: 20051129

REACTIONS (1)
  - RENAL IMPAIRMENT [None]
